FAERS Safety Report 14199634 (Version 1)
Quarter: 2017Q4

REPORT INFORMATION
  Report Type: Spontaneous
  Country: US (occurrence: US)
  Receive Date: 20171117
  Receipt Date: 20171117
  Transmission Date: 20180321
  Serious: Yes (Other)
  Sender: FDA-Public Use
  Company Number: None

PATIENT
  Age: 27 Year
  Sex: Female
  Weight: 57.15 kg

DRUGS (3)
  1. MICROGESTIN FE 1/20 [Suspect]
     Active Substance: ETHINYL ESTRADIOL\NORETHINDRONE ACETATE
     Indication: CONTRACEPTION
     Dosage: ?          QUANTITY:21 TABLET(S);?
     Route: 048
     Dates: start: 20170901, end: 20171116
  2. HAIR SKIN + NAIL VITAMINS [Concomitant]
  3. NATURAL CURVES VITAMINS [Concomitant]

REACTIONS (2)
  - Menorrhagia [None]
  - Weight decreased [None]

NARRATIVE: CASE EVENT DATE: 20171116
